FAERS Safety Report 24729394 (Version 5)
Quarter: 2025Q1

REPORT INFORMATION
  Report Type: Report from Study
  Country: CA (occurrence: CA)
  Receive Date: 20241213
  Receipt Date: 20250311
  Transmission Date: 20250408
  Serious: Yes (Hospitalization, Other)
  Sender: ROCHE
  Company Number: CA-ROCHE-10000138812

PATIENT
  Sex: Female

DRUGS (1)
  1. ENSPRYNG [Suspect]
     Active Substance: SATRALIZUMAB-MWGE
     Indication: Neuromyelitis optica spectrum disorder
     Route: 058
     Dates: start: 20211115

REACTIONS (7)
  - Breast cancer metastatic [Unknown]
  - Myelitis [Unknown]
  - White blood cell count increased [Not Recovered/Not Resolved]
  - Pain [Unknown]
  - Immunodeficiency [Not Recovered/Not Resolved]
  - Lymphopenia [Unknown]
  - Pneumonia [Unknown]
